FAERS Safety Report 5027400-3 (Version None)
Quarter: 2006Q2

REPORT INFORMATION
  Report Type: 
  Country: None (occurrence: None)
  Receive Date: 20060501
  Receipt Date: 20060215
  Transmission Date: 20061013
  Serious: No
  Sender: FDA-Public Use
  Company Number: 200610896BWH

PATIENT
  Age: 67 Year
  Sex: Female

DRUGS (4)
  1. NEXAVAR [Suspect]
     Indication: LUNG DISORDER
     Dosage: 400 MG, BID, ORAL
     Route: 048
     Dates: start: 20060118
  2. NEXAVAR [Suspect]
     Indication: RENAL CELL CARCINOMA STAGE UNSPECIFIED
     Dosage: 400 MG, BID, ORAL
     Route: 048
     Dates: start: 20060118
  3. ALTACE [Concomitant]
  4. ATENOLOL [Concomitant]

REACTIONS (4)
  - DECREASED APPETITE [None]
  - FEELING HOT [None]
  - PYREXIA [None]
  - RASH [None]
